FAERS Safety Report 7328779-X (Version None)
Quarter: 2011Q1

REPORT INFORMATION
  Report Type: 
  Country: None (occurrence: None)
  Receive Date: 20110303
  Receipt Date: 20110224
  Transmission Date: 20110831
  Serious: Yes (Hospitalization)
  Sender: FDA-Public Use
  Company Number: PHHO2010IE03795

PATIENT
  Sex: Male
  Weight: 104 kg

DRUGS (15)
  1. COMPARATOR ENALAPRIL [Suspect]
     Indication: CARDIAC FAILURE
  2. BISOPROLOL FUMARATE [Concomitant]
     Indication: CARDIAC FAILURE
     Dosage: UNK
  3. ASPIRIN [Concomitant]
  4. DIGOXIN [Concomitant]
  5. BLINDED ALISKIREN [Suspect]
     Dosage: CODE NOT BROKEN
     Route: 048
     Dates: start: 20101215, end: 20110224
  6. ALISKIREN [Suspect]
  7. NSA [Concomitant]
  8. SIMVASTATIN [Concomitant]
  9. BLINDED ENALAPRIL [Suspect]
     Dosage: CODE NOT BROKEN
     Route: 048
     Dates: start: 20101215, end: 20110224
  10. BLINDED NO TREATMENT RECEIVED [Suspect]
     Dosage: CODE NOT BROKEN
     Route: 048
     Dates: start: 20101215, end: 20110224
  11. QUININE SULFATE [Concomitant]
  12. BLINDED NO TREATMENT RECEIVED [Suspect]
     Indication: CARDIAC FAILURE
     Dosage: CODE NOT BROKEN
     Route: 048
     Dates: start: 20091209, end: 20100303
  13. BLINDED ALISKIREN [Suspect]
     Indication: CARDIAC FAILURE
     Dosage: CODE NOT BROKEN
     Route: 048
     Dates: start: 20091209, end: 20100303
  14. BLINDED ENALAPRIL [Suspect]
     Indication: CARDIAC FAILURE
     Dosage: CODE NOT BROKEN
     Route: 048
     Dates: start: 20091209, end: 20100303
  15. PERINDOPRIL ERBUMINE [Concomitant]
     Indication: CARDIAC FAILURE

REACTIONS (8)
  - DYSPNOEA [None]
  - PULMONARY OEDEMA [None]
  - TACHYCARDIA [None]
  - CARDIAC FAILURE [None]
  - DISEASE PROGRESSION [None]
  - CHEST PAIN [None]
  - ASTHENIA [None]
  - DIZZINESS [None]
